FAERS Safety Report 8257134-3 (Version None)
Quarter: 2012Q2

REPORT INFORMATION
  Report Type: 
  Country: None (occurrence: None)
  Receive Date: 20120403
  Receipt Date: 20120326
  Transmission Date: 20120825
  Serious: Yes (Other)
  Sender: FDA-Public Use
  Company Number: US-BAYER-2012-029756

PATIENT
  Sex: Female

DRUGS (1)
  1. YAZ [Suspect]
     Dosage: UNK
     Dates: start: 20060101, end: 20071001

REACTIONS (7)
  - INJURY [None]
  - ANXIETY [None]
  - GALLBLADDER INJURY [None]
  - GENERAL PHYSICAL HEALTH DETERIORATION [None]
  - PAIN [None]
  - EMOTIONAL DISTRESS [None]
  - ANHEDONIA [None]
